FAERS Safety Report 4636524-1 (Version None)
Quarter: 2005Q2

REPORT INFORMATION
  Report Type: 
  Country: None (occurrence: None)
  Receive Date: 20050415
  Receipt Date: 20050315
  Transmission Date: 20051028
  Serious: Yes (Other)
  Sender: FDA-Public Use
  Company Number: 171771

PATIENT

DRUGS (2)
  1. ADVAIR DISKUS 100/50 [Suspect]
     Indication: DRUG USE FOR UNKNOWN INDICATION
     Route: 055
  2. VENTOLIN HFA [Concomitant]
     Route: 065

REACTIONS (5)
  - BACTERIAL INFECTION [None]
  - DRY THROAT [None]
  - LARYNGEAL ULCERATION [None]
  - OESOPHAGEAL ULCER [None]
  - PHARYNGOLARYNGEAL PAIN [None]
